FAERS Safety Report 15788151 (Version 1)
Quarter: 2019Q1

REPORT INFORMATION
  Report Type: Report from Study
  Country: US (occurrence: US)
  Receive Date: 20190104
  Receipt Date: 20190104
  Transmission Date: 20190417
  Serious: Yes (Other)
  Sender: FDA-Public Use
  Company Number: US-ACCORD-098909

PATIENT
  Age: 52 Month
  Sex: Male

DRUGS (5)
  1. TOPOTECAN [Suspect]
     Active Substance: TOPOTECAN HYDROCHLORIDE
     Indication: CONGENITAL RETINOBLASTOMA
     Dosage: OPHTHALMIC ARTERY CHEMOTHERAPY
     Route: 013
  2. CARBOPLATIN. [Suspect]
     Active Substance: CARBOPLATIN
     Indication: CONGENITAL RETINOBLASTOMA
     Dosage: OPHTHALMIC ARTERY CHEMOTHERAPY
     Route: 013
  3. NITROUS OXIDE. [Suspect]
     Active Substance: NITROUS OXIDE
     Indication: INDUCTION OF ANAESTHESIA
     Dosage: WITH A MAXIMUM END TIDAL NITROUS OXIDE (ET N2O) OF 60.2%
     Route: 055
  4. MELPHALAN. [Suspect]
     Active Substance: MELPHALAN
     Indication: CONGENITAL RETINOBLASTOMA
     Dosage: OPHTHALMIC ARTERY CHEMOTHERAPY
     Route: 013
  5. HEPARIN [Concomitant]
     Active Substance: HEPARIN SODIUM
     Indication: PROPHYLAXIS

REACTIONS (6)
  - Off label use [Unknown]
  - Toxicity to various agents [Unknown]
  - Choroidal infarction [Unknown]
  - Ischaemia [Unknown]
  - Arterial thrombosis [Unknown]
  - Retinal pigment epitheliopathy [Unknown]
